FAERS Safety Report 12078771 (Version 2)
Quarter: 2016Q1

REPORT INFORMATION
  Report Type: Spontaneous
  Country: JP (occurrence: JP)
  Receive Date: 20160216
  Receipt Date: 20160311
  Transmission Date: 20160526
  Serious: Yes (Disabling)
  Sender: FDA-Public Use
  Company Number: JP-009507513-1601JPN004445

PATIENT
  Age: 46 Year
  Sex: Female
  Weight: 54 kg

DRUGS (10)
  1. FENTANYL. [Suspect]
     Active Substance: FENTANYL
     Indication: ANAESTHESIA
     Dosage: 100 MICROGRAM, UNK
     Route: 065
  2. PREDNISOLONE. [Concomitant]
     Active Substance: PREDNISOLONE
     Dosage: 10 MG, QD, DIVIDED DOSE FREQUENCY UNKNOWN
     Route: 048
  3. CHLORHEXIDINE ACETATE [Concomitant]
     Active Substance: CHLORHEXIDINE ACETATE
     Dosage: DAILY DOSE UNKNOWN
     Route: 065
  4. PROPOFOL. [Suspect]
     Active Substance: PROPOFOL
     Indication: ANAESTHESIA
     Dosage: 3 UG/ML, DAILY DOSE UNKNOWN
     Route: 051
  5. DROPERIDOL. [Suspect]
     Active Substance: DROPERIDOL
     Indication: ANAESTHESIA
     Dosage: 2.5 MG, UNK
     Route: 051
  6. ROCURONIUM BROMIDE. [Suspect]
     Active Substance: ROCURONIUM BROMIDE
     Dosage: 23 MG, QD, TRAP (FROM AN OPERATIVE BEGINNING). PERPETUATION DOSAGE IS 61.7MG
     Route: 042
     Dates: start: 20140130, end: 20140130
  7. PROPOFOL. [Suspect]
     Active Substance: PROPOFOL
     Dosage: THEN ADJUSTED TO MAINTAIN AS BIS INDEX OF 40-60
     Route: 051
  8. ROCURONIUM BROMIDE. [Suspect]
     Active Substance: ROCURONIUM BROMIDE
     Indication: NEUROMUSCULAR BLOCKING THERAPY
     Dosage: 40 MG, QD, AT THE INTUBATION
     Route: 042
     Dates: start: 20140130, end: 20140130
  9. ROPIVACAINE HYDROCHLORIDE. [Suspect]
     Active Substance: ROPIVACAINE HYDROCHLORIDE
     Dosage: 6 ML, UNK
     Route: 051
  10. REMIFENTANIL HYDROCHLORIDE [Suspect]
     Active Substance: REMIFENTANIL HYDROCHLORIDE
     Indication: ANAESTHESIA
     Dosage: 0.3 MICROGRAM PER KILOGRAM/MIN, UNK
     Route: 051

REACTIONS (1)
  - Myelitis transverse [Recovering/Resolving]

NARRATIVE: CASE EVENT DATE: 20140131
